FAERS Safety Report 19173687 (Version 1)
Quarter: 2021Q2

REPORT INFORMATION
  Report Type: Spontaneous
  Country: GB (occurrence: GB)
  Receive Date: 20210423
  Receipt Date: 20210423
  Transmission Date: 20210717
  Serious: Yes (Other)
  Sender: FDA-Public Use
  Company Number: GB-SUN PHARMACEUTICAL INDUSTRIES LTD-2021R1-292801

PATIENT
  Age: 11 Year
  Sex: Female

DRUGS (2)
  1. ADRENALINE [Suspect]
     Active Substance: EPINEPHRINE
     Indication: ANAPHYLACTIC REACTION
     Dosage: UNK
     Route: 030
  2. SALBUTAMOL [Suspect]
     Active Substance: ALBUTEROL
     Indication: ANAPHYLACTIC REACTION
     Dosage: UNK

REACTIONS (3)
  - Urticaria [Recovering/Resolving]
  - Therapy partial responder [Not Recovered/Not Resolved]
  - Respiratory distress [Recovering/Resolving]
